FAERS Safety Report 23665065 (Version 1)
Quarter: 2024Q1

REPORT INFORMATION
  Report Type: Spontaneous
  Country: US (occurrence: US)
  Receive Date: 20240322
  Receipt Date: 20240322
  Transmission Date: 20240410
  Serious: Yes (Death)
  Sender: FDA-Public Use
  Company Number: US-OPKO PHARMACEUTICALS, LLC.-2024OPK00063

PATIENT
  Age: 78 Year
  Sex: Female
  Weight: 86.168 kg

DRUGS (33)
  1. RAYALDEE [Suspect]
     Active Substance: CALCIFEDIOL
     Indication: Chronic kidney disease
     Dosage: 30 MCG, QD
     Route: 048
     Dates: start: 20231128, end: 20240307
  2. RAYALDEE [Suspect]
     Active Substance: CALCIFEDIOL
     Indication: Hyperparathyroidism secondary
  3. RAYALDEE [Suspect]
     Active Substance: CALCIFEDIOL
     Indication: Vitamin D deficiency
  4. ALBUTEROL SULFATE [Concomitant]
     Active Substance: ALBUTEROL SULFATE
     Dosage: 2 UNK, QID
     Dates: start: 20221214, end: 20240307
  5. ALENDRONATE [Concomitant]
     Active Substance: ALENDRONATE SODIUM
     Dosage: 70 MG, TIW
     Route: 048
     Dates: start: 20230705, end: 20240307
  6. AMLODIPINE [Concomitant]
     Active Substance: AMLODIPINE BESYLATE
     Dosage: 5 MG, QD
     Route: 048
     Dates: start: 20231116, end: 20240307
  7. ASPIRIN [Concomitant]
     Active Substance: ASPIRIN
     Dosage: 81 MG, QD
     Route: 048
     Dates: start: 20231116, end: 20240307
  8. AZITHROMYCIN [Concomitant]
     Active Substance: AZITHROMYCIN
     Dosage: 500 MG, QD
     Route: 048
     Dates: start: 20240123
  9. BENZONATATE [Concomitant]
     Active Substance: BENZONATATE
     Dosage: 200 MG, QD
     Route: 048
     Dates: start: 20240123
  10. CARBAMAZEPINE [Concomitant]
     Active Substance: CARBAMAZEPINE
     Dosage: 200 MG, TID
     Route: 048
     Dates: start: 20230227, end: 20240307
  11. CHOLECALCIFEROL [Concomitant]
     Active Substance: CHOLECALCIFEROL
     Dosage: 125 MCG, QD
     Route: 048
     Dates: start: 20230801, end: 20231031
  12. CLONIDINE [Concomitant]
     Active Substance: CLONIDINE
     Dosage: 01 MG, BID
     Route: 048
     Dates: start: 20231116, end: 20240307
  13. CYANOCOBALAMIN [Concomitant]
     Active Substance: CYANOCOBALAMIN
     Dosage: 1000 MCG, QD
     Route: 058
     Dates: start: 20231002, end: 20240307
  14. CYCLOBENZAPRINE [Concomitant]
     Active Substance: CYCLOBENZAPRINE
     Dosage: 10 MG
     Dates: start: 20231127, end: 20240307
  15. DIAZEPAM [Concomitant]
     Active Substance: DIAZEPAM
     Dosage: 10 MG
     Dates: start: 20230824, end: 20240307
  16. ESCITALOPRAM [Concomitant]
     Active Substance: ESCITALOPRAM OXALATE
     Dosage: 20 MG, QD
     Route: 048
     Dates: start: 20230824, end: 20240307
  17. GABAPENTIN [Concomitant]
     Active Substance: GABAPENTIN
     Dosage: 300 MG
     Dates: start: 20231002, end: 20240307
  18. HALOPERIDOL DECANOATE [Concomitant]
     Active Substance: HALOPERIDOL DECANOATE
     Dosage: 5 MG, QID
     Route: 048
     Dates: start: 20230313, end: 20240307
  19. HYDROCODONE [Concomitant]
     Active Substance: HYDROCODONE
     Dosage: 10 MG
     Dates: start: 20240103, end: 20240307
  20. IVERMECTIN [Concomitant]
     Active Substance: IVERMECTIN
     Dosage: 3 MG
     Dates: start: 20240123, end: 20240307
  21. JARDIANCE [Concomitant]
     Active Substance: EMPAGLIFLOZIN
     Dosage: 10 MG, QD
     Route: 048
     Dates: start: 20240213, end: 20240307
  22. LAMOTRIGINE [Concomitant]
     Active Substance: LAMOTRIGINE
     Dosage: 150 MG, TID
     Route: 048
     Dates: start: 20230824, end: 20240307
  23. LANTUS SOLOSTAR [Concomitant]
     Active Substance: INSULIN GLARGINE
     Dosage: 15 UT, QD
     Route: 058
     Dates: start: 20230126, end: 20240107
  24. LEVETIRACETAM [Concomitant]
     Active Substance: LEVETIRACETAM
     Dosage: 500 MG, BID
     Route: 048
     Dates: start: 20231116, end: 20240215
  25. LOVASTATIN [Concomitant]
     Active Substance: LOVASTATIN
     Dosage: 10 MG, QD
     Route: 048
     Dates: start: 20231116, end: 20240307
  26. METOPROLOL SUCCINATE [Concomitant]
     Active Substance: METOPROLOL SUCCINATE
     Dosage: 50 MG, BID
     Route: 048
     Dates: start: 20231116, end: 20240307
  27. MONTELUKAST SODIUM [Concomitant]
     Active Substance: MONTELUKAST SODIUM
     Dosage: 10 MG, QD
     Route: 048
     Dates: start: 20231116, end: 20240307
  28. NOVOLOG [Concomitant]
     Active Substance: INSULIN ASPART
     Dosage: 100 UNK
     Route: 058
     Dates: start: 20240126, end: 20240307
  29. PIOGLITAZONE [Concomitant]
     Active Substance: PIOGLITAZONE
     Dosage: 30 MG, QD
     Route: 048
     Dates: start: 20231002, end: 20240307
  30. PREDNISONE [Concomitant]
     Active Substance: PREDNISONE
     Dosage: 20 MG, TID
     Route: 048
     Dates: start: 20230519, end: 20240307
  31. PRIMIDONE [Concomitant]
     Active Substance: PRIMIDONE
     Dosage: 100 MG, TID
     Route: 048
     Dates: start: 20240105, end: 20240307
  32. RISPERIDONE [Concomitant]
     Active Substance: RISPERIDONE
     Dosage: 2 MG, QD
     Dates: start: 20231116, end: 20240307
  33. VITAMIN D2 [Concomitant]
     Active Substance: ERGOCALCIFEROL
     Dosage: 1250 MCG, QW
     Route: 048
     Dates: start: 20230801, end: 20231024

REACTIONS (1)
  - Death [Fatal]

NARRATIVE: CASE EVENT DATE: 20240307
